FAERS Safety Report 7366452-2 (Version None)
Quarter: 2011Q1

REPORT INFORMATION
  Report Type: 
  Country: None (occurrence: None)
  Receive Date: 20110322
  Receipt Date: 20110311
  Transmission Date: 20110831
  Serious: Yes (Death, Other)
  Sender: FDA-Public Use
  Company Number: IT-CELGENEUS-083-21880-11031573

PATIENT

DRUGS (2)
  1. CYTARABINE [Suspect]
     Dosage: 40 MILLIGRAM
     Route: 058
  2. REVLIMID [Suspect]
     Dosage: 10 MILLIGRAM
     Route: 048

REACTIONS (2)
  - MULTI-ORGAN FAILURE [None]
  - INFECTION [None]
